FAERS Safety Report 17539181 (Version 2)
Quarter: 2020Q1

REPORT INFORMATION
  Report Type: Spontaneous
  Country: FR (occurrence: FR)
  Receive Date: 20200313
  Receipt Date: 20200327
  Transmission Date: 20200409
  Serious: Yes (Other)
  Sender: FDA-Public Use
  Company Number: FR-009507513-2003FRA003065

PATIENT
  Age: 27 Year
  Sex: Female

DRUGS (2)
  1. DIPROSALIC [Suspect]
     Active Substance: BETAMETHASONE DIPROPIONATE
     Indication: WRONG PRODUCT ADMINISTERED
     Dosage: 1 GTT DROPS (1/12 MILLILITRE), ONCE (1 TOTAL)
     Route: 047
     Dates: start: 20200218
  2. CHIBRO-CADRON [Concomitant]
     Active Substance: DEXAMETHASONE\NEOMYCIN SULFATE
     Dosage: UNK, EYE DROPS IN BOTTLE; NOT ADMINISTERED

REACTIONS (3)
  - Medication error [Recovered/Resolved]
  - Conjunctival irritation [Recovered/Resolved]
  - Wrong product administered [Recovered/Resolved]

NARRATIVE: CASE EVENT DATE: 20200218
